FAERS Safety Report 4604591-7 (Version None)
Quarter: 2005Q1

REPORT INFORMATION
  Report Type: 
  Country: None (occurrence: None)
  Receive Date: 20050310
  Receipt Date: 20050128
  Transmission Date: 20050727
  Serious: Yes (Hospitalization, Disabling)
  Sender: FDA-Public Use
  Company Number: DE-MERCK-0501DEU00284

PATIENT
  Age: 44 Year
  Sex: Male

DRUGS (6)
  1. VIOXX [Suspect]
     Indication: INTERVERTEBRAL DISC DISORDER
     Route: 048
     Dates: start: 19991028, end: 20031201
  2. VIOXX [Suspect]
     Indication: PAIN
     Route: 048
     Dates: start: 19991028, end: 20031201
  3. PIROXICAM BETADEX [Concomitant]
     Route: 065
  4. CELECOXIB [Concomitant]
     Route: 065
  5. TILIDINE HYDROCHLORIDE [Concomitant]
     Route: 065
  6. FOSAMAX [Concomitant]
     Route: 065

REACTIONS (12)
  - FEELING ABNORMAL [None]
  - HAEMATURIA [None]
  - HYPERHIDROSIS [None]
  - HYPERTENSION [None]
  - HYPERTENSIVE CRISIS [None]
  - NAUSEA [None]
  - NEPHROSCLEROSIS [None]
  - PAIN [None]
  - RENAL FAILURE ACUTE [None]
  - RENAL INFARCT [None]
  - RETINAL INFARCTION [None]
  - VISUAL DISTURBANCE [None]
